FAERS Safety Report 4548344-7 (Version None)
Quarter: 2004Q4

REPORT INFORMATION
  Report Type: 
  Country: None (occurrence: None)
  Receive Date: 20041227
  Receipt Date: 20040901
  Transmission Date: 20050328
  Serious: Yes (Death)
  Sender: FDA-Public Use
  Company Number: 04P-163-0272144-00

PATIENT
  Age: 79 Year
  Sex: Female

DRUGS (10)
  1. HUMIRA [Suspect]
     Indication: RHEUMATOID ARTHRITIS
     Dosage: 40 MG, 1 IN 2 WK, SUBCUTANEOUS
     Route: 058
     Dates: start: 20040611, end: 20040801
  2. INSULIN 70/30 (INSULIN) [Concomitant]
  3. METHOTREXATE [Concomitant]
  4. DURAGESIC [Concomitant]
  5. PREDNISONE [Concomitant]
  6. METFORMIN HCL [Concomitant]
  7. VOLTAREN [Concomitant]
  8. ZOCOR [Concomitant]
  9. ACETAMINOPHEN [Concomitant]
  10. VICODIN [Concomitant]

REACTIONS (1)
  - MYOCARDIAL INFARCTION [None]
